FAERS Safety Report 7799935-1 (Version None)
Quarter: 2011Q4

REPORT INFORMATION
  Report Type: 
  Country: None (occurrence: None)
  Receive Date: 20111006
  Receipt Date: 20110928
  Transmission Date: 20120403
  Serious: Yes (Hospitalization, Other)
  Sender: FDA-Public Use
  Company Number: US-ASTRAZENECA-2011SE55887

PATIENT
  Age: 48 Year
  Sex: Female
  Weight: 65.8 kg

DRUGS (5)
  1. SEROQUEL XR [Suspect]
     Indication: BIPOLAR DISORDER
     Route: 048
     Dates: start: 20070101
  2. ALBUTEROL [Concomitant]
     Indication: ASTHMA
     Dosage: PRN
  3. ATEROL [Concomitant]
  4. NEBULIZATIONS [Concomitant]
     Indication: ASTHMA
  5. PROZAC [Concomitant]
     Indication: DEPRESSION

REACTIONS (5)
  - BACK PAIN [None]
  - POLLAKIURIA [None]
  - MEDICAL DEVICE COMPLICATION [None]
  - UTERINE LEIOMYOMA [None]
  - MALAISE [None]
